APPROVED DRUG PRODUCT: TRETINOIN
Active Ingredient: TRETINOIN
Strength: 0.1%
Dosage Form/Route: GEL;TOPICAL
Application: A202026 | Product #001
Applicant: RISING PHARMA HOLDINGS INC
Approved: Jul 17, 2013 | RLD: No | RS: No | Type: DISCN